FAERS Safety Report 6748503-9 (Version None)
Quarter: 2010Q2

REPORT INFORMATION
  Report Type: 
  Country: None (occurrence: None)
  Receive Date: 20100527
  Receipt Date: 20100527
  Transmission Date: 20101027
  Serious: No
  Sender: FDA-Public Use
  Company Number: None

PATIENT
  Sex: Female
  Weight: 86.1834 kg

DRUGS (1)
  1. CYMBALTA [Suspect]
     Indication: DEPRESSION
     Dosage: ONE CAPSULE ONCE DAILY PO
     Route: 048
     Dates: start: 20100415, end: 20100522

REACTIONS (4)
  - DIARRHOEA [None]
  - LETHARGY [None]
  - TREMOR [None]
  - WITHDRAWAL SYNDROME [None]
